FAERS Safety Report 7405453-2 (Version None)
Quarter: 2011Q2

REPORT INFORMATION
  Report Type: 
  Country: None (occurrence: None)
  Receive Date: 20110408
  Receipt Date: 20110308
  Transmission Date: 20111010
  Serious: No
  Sender: FDA-Public Use
  Company Number: DL2011-0173

PATIENT
  Age: 36 Year
  Sex: Female

DRUGS (4)
  1. MIFEPRISTONE TABLETS, 200 MG (DANCO LABS) [Suspect]
     Indication: ABORTION INDUCED
     Dosage: 200 MG, ORAL
     Route: 048
     Dates: start: 20100910
  2. MIFEPRISTONE TABLETS, 200 MG (DANCO LABS) [Suspect]
     Indication: ABORTION INDUCED
     Dosage: 200 MG, ORAL
     Route: 048
     Dates: start: 20100917
  3. MISOPROSTOL [Suspect]
     Dosage: 800 MG , BUCCAL
     Route: 002
     Dates: start: 20100917
  4. MISOPROSTOL [Suspect]
     Dosage: 800 MG , BUCCAL
     Route: 002
     Dates: start: 20100912

REACTIONS (1)
  - ABORTION INCOMPLETE [None]
